FAERS Safety Report 24421087 (Version 1)
Quarter: 2024Q4

REPORT INFORMATION
  Report Type: Report from Study
  Country: AU (occurrence: AU)
  Receive Date: 20241010
  Receipt Date: 20241010
  Transmission Date: 20250115
  Serious: Yes (Hospitalization, Other)
  Sender: TAKEDA
  Company Number: AU-JNJFOC-20240940696

PATIENT
  Age: 58 Year
  Sex: Male

DRUGS (20)
  1. BORTEZOMIB [Suspect]
     Active Substance: BORTEZOMIB
     Indication: Plasma cell myeloma refractory
     Dosage: 1.3 MILLIGRAM/SQ. METER
     Route: 058
     Dates: start: 20220524
  2. BORTEZOMIB [Suspect]
     Active Substance: BORTEZOMIB
     Dosage: 1 MILLIGRAM/SQ. METER
     Route: 058
     Dates: start: 20220726
  3. BORTEZOMIB [Suspect]
     Active Substance: BORTEZOMIB
     Dosage: 0.7 MILLIGRAM/SQ. METER
     Route: 058
     Dates: start: 20230905
  4. DEXAMETHASONE [Suspect]
     Active Substance: DEXAMETHASONE
     Indication: Plasma cell myeloma refractory
     Dosage: UNK
     Route: 065
     Dates: start: 20220524
  5. POMALIDOMIDE [Suspect]
     Active Substance: POMALIDOMIDE
     Indication: Plasma cell myeloma refractory
     Dosage: UNK
     Route: 065
     Dates: start: 20230404
  6. BACTRIM [Concomitant]
     Active Substance: SULFAMETHOXAZOLE\TRIMETHOPRIM
     Indication: Infection prophylaxis
     Dosage: UNK
     Route: 048
     Dates: start: 20020524
  7. GLYCOSAMINOGLYCANS [Concomitant]
     Active Substance: GLYCOSAMINOGLYCANS
     Indication: Injection site bruising
     Dosage: 3 MILLIGRAM
     Route: 061
     Dates: start: 20220622
  8. ASPIRIN [Concomitant]
     Active Substance: ASPIRIN
     Indication: Prophylaxis
     Dosage: 100 MILLIGRAM
     Route: 048
     Dates: start: 20220524
  9. ESOMEPRAZOLE [Concomitant]
     Active Substance: ESOMEPRAZOLE
     Indication: Gastrooesophageal reflux prophylaxis
     Dosage: 20 MILLIGRAM
     Route: 048
     Dates: start: 20220524
  10. METHOXYFLURANE [Concomitant]
     Active Substance: METHOXYFLURANE
     Indication: Pain
     Dosage: UNK
     Route: 045
     Dates: start: 20230201
  11. PREDNISOLONE [Concomitant]
     Active Substance: PREDNISOLONE
     Indication: Product used for unknown indication
     Dosage: 25 MILLIGRAM
     Route: 048
     Dates: start: 20240822, end: 20240826
  12. TEMAZEPAM [Concomitant]
     Active Substance: TEMAZEPAM
     Indication: Insomnia
     Dosage: 10 MILLIGRAM
     Route: 048
     Dates: start: 20220601
  13. TIMOLOL [Concomitant]
     Active Substance: TIMOLOL\TIMOLOL MALEATE
     Indication: Glaucoma
     Dosage: 0.5 PERCENT
     Route: 031
     Dates: start: 2012
  14. VITAMIN D [Concomitant]
     Active Substance: VITAMIN D NOS
     Indication: Nutritional supplementation
     Dosage: 1000 UNK
     Route: 065
     Dates: start: 2005
  15. VALACYCLOVIR [Concomitant]
     Active Substance: VALACYCLOVIR HYDROCHLORIDE
     Dosage: UNK
     Route: 065
  16. OENOTHERA BIENNIS OIL [Concomitant]
     Dosage: UNK
     Route: 065
  17. FILGRASTIM [Concomitant]
     Active Substance: FILGRASTIM
     Indication: Neutropenia
     Dosage: 480 MICROGRAM, QD
     Route: 058
     Dates: start: 20240821, end: 20240822
  18. SODIUM PHOSPHATE, MONOBASIC, ANHYDROUS [Concomitant]
     Active Substance: SODIUM PHOSPHATE, MONOBASIC, ANHYDROUS
     Dosage: UNK
     Route: 065
  19. SLOW K [Concomitant]
     Active Substance: POTASSIUM CHLORIDE
     Indication: Product used for unknown indication
     Dosage: UNK UNK, BID
     Route: 048
     Dates: start: 20240822, end: 20240826
  20. ABX [Concomitant]
     Dosage: UNK
     Route: 042

REACTIONS (3)
  - Metapneumovirus infection [Recovered/Resolved]
  - Thrombocytopenia [Recovered/Resolved]
  - Intentional product use issue [Unknown]

NARRATIVE: CASE EVENT DATE: 20220524
